FAERS Safety Report 16191545 (Version 4)
Quarter: 2019Q2

REPORT INFORMATION
  Report Type: Spontaneous
  Country: US (occurrence: US)
  Receive Date: 20190412
  Receipt Date: 20190624
  Transmission Date: 20190711
  Serious: Yes (Other)
  Sender: FDA-Public Use
  Company Number: US-GLAXOSMITHKLINE-US2019GSK066596

PATIENT
  Sex: Male

DRUGS (1)
  1. PREVACID [Suspect]
     Active Substance: LANSOPRAZOLE
     Indication: PRODUCT USED FOR UNKNOWN INDICATION
     Dosage: UNK
     Route: 065

REACTIONS (13)
  - Pollakiuria [Unknown]
  - End stage renal disease [Unknown]
  - Glomerulonephritis [Unknown]
  - IgA nephropathy [Unknown]
  - Proteinuria [Unknown]
  - Renal disorder [Unknown]
  - Chronic kidney disease [Unknown]
  - Haematuria [Unknown]
  - Acute kidney injury [Unknown]
  - Nephrosclerosis [Unknown]
  - Glomerulosclerosis [Unknown]
  - Nephropathy [Unknown]
  - Urine abnormality [Unknown]
